FAERS Safety Report 17091480 (Version 1)
Quarter: 2019Q4

REPORT INFORMATION
  Report Type: Spontaneous
  Country: IE (occurrence: IE)
  Receive Date: 20191129
  Receipt Date: 20191129
  Transmission Date: 20200122
  Serious: Yes (Other)
  Sender: FDA-Public Use
  Company Number: IE-TEVA-2019-IE-1146208

PATIENT
  Age: 17 Year
  Sex: Female

DRUGS (4)
  1. PROPRANOLOL [Suspect]
     Active Substance: PROPRANOLOL HYDROCHLORIDE
  2. AMITRIPTYLINE [Suspect]
     Active Substance: AMITRIPTYLINE
     Dosage: 10 MILLIGRAM DAILY; AT NIGHT
  3. TOPAMAX [Suspect]
     Active Substance: TOPIRAMATE
     Dosage: 25MG AT NIGHT AND TITRATING UP AT 25MG DOSES TO 50MG TWICE A DAY AT 1-2 WEEKLY INTERVALS
     Route: 065
  4. SUMATRIPTAN 50MG [Concomitant]
     Active Substance: SUMATRIPTAN

REACTIONS (6)
  - Drug intolerance [Unknown]
  - Depression [Recovering/Resolving]
  - Drug ineffective [Unknown]
  - Suicidal ideation [Recovering/Resolving]
  - Migraine [Recovering/Resolving]
  - Anxiety [Recovering/Resolving]
